FAERS Safety Report 6195534-6 (Version None)
Quarter: 2009Q2

REPORT INFORMATION
  Report Type: 
  Country: None (occurrence: None)
  Receive Date: 20090519
  Receipt Date: 20090511
  Transmission Date: 20091009
  Serious: Yes (Other)
  Sender: FDA-Public Use
  Company Number: PHEH2009US03967

PATIENT
  Sex: Female
  Weight: 145 kg

DRUGS (4)
  1. EXJADE [Suspect]
     Indication: MYELODYSPLASTIC SYNDROME
     Dosage: 1250 MG, QD
     Route: 048
     Dates: start: 20090201, end: 20090421
  2. PRILOSEC [Concomitant]
  3. MIRALAX [Concomitant]
  4. THYROID HORMONES [Concomitant]

REACTIONS (12)
  - ASTHENIA [None]
  - CHILLS [None]
  - CONSTIPATION [None]
  - CONTUSION [None]
  - COUGH [None]
  - FALL [None]
  - FATIGUE [None]
  - GAIT DISTURBANCE [None]
  - HAEMATOCHEZIA [None]
  - HYPOACUSIS [None]
  - RECTAL HAEMORRHAGE [None]
  - VISUAL ACUITY REDUCED [None]
